FAERS Safety Report 10913256 (Version 2)
Quarter: 2015Q3

REPORT INFORMATION
  Report Type: Spontaneous
  Country: FR (occurrence: FR)
  Receive Date: 20150313
  Receipt Date: 20150707
  Transmission Date: 20151125
  Serious: Yes (Other)
  Sender: FDA-Public Use
  Company Number: FR-TEVA-546762ISR

PATIENT
  Sex: Male

DRUGS (2)
  1. ACTIQ [Suspect]
     Active Substance: FENTANYL CITRATE
     Indication: PRODUCT USED FOR UNKNOWN INDICATION
     Dosage: 200 MICROGRAM
     Route: 065
  2. ACTIQ [Suspect]
     Active Substance: FENTANYL CITRATE
     Dosage: 600 MICROGRAM
     Route: 065

REACTIONS (3)
  - Product use issue [Unknown]
  - Diabetes mellitus [Unknown]
  - Tooth disorder [Unknown]
